FAERS Safety Report 6613590-5 (Version None)
Quarter: 2010Q1

REPORT INFORMATION
  Report Type: 
  Country: None (occurrence: None)
  Receive Date: 20100304
  Receipt Date: 20100222
  Transmission Date: 20100710
  Serious: Yes (Other)
  Sender: FDA-Public Use
  Company Number: JP-ROCHE-678934

PATIENT
  Sex: Female
  Weight: 53 kg

DRUGS (21)
  1. TOCILIZUMAB [Suspect]
     Indication: RHEUMATOID ARTHRITIS
     Route: 041
     Dates: start: 20080901, end: 20080901
  2. TOCILIZUMAB [Suspect]
     Route: 041
     Dates: start: 20080929, end: 20080929
  3. TOCILIZUMAB [Suspect]
     Route: 041
     Dates: start: 20081127, end: 20081127
  4. TOCILIZUMAB [Suspect]
     Route: 041
     Dates: start: 20081202, end: 20081222
  5. TOCILIZUMAB [Suspect]
     Route: 041
     Dates: start: 20090210, end: 20090210
  6. TOCILIZUMAB [Suspect]
     Route: 041
     Dates: start: 20090317, end: 20090317
  7. TOCILIZUMAB [Suspect]
     Route: 041
     Dates: start: 20090414, end: 20090414
  8. TOCILIZUMAB [Suspect]
     Route: 041
     Dates: start: 20090512, end: 20090512
  9. TOCILIZUMAB [Suspect]
     Route: 041
     Dates: start: 20090608
  10. PREDNISOLONE [Suspect]
     Route: 048
  11. TACROLIMUS [Suspect]
     Dosage: DOSE FORM: ORAL FORMULATION (NOT OTHERWISE SPECIFIED)
     Route: 048
     Dates: start: 20070906
  12. METHOTREXATE [Suspect]
     Route: 048
     Dates: start: 20070906, end: 20090309
  13. BONALON [Concomitant]
     Route: 048
  14. VITAMEDIN [Concomitant]
     Route: 048
  15. APLACE [Concomitant]
     Dosage: DOSE FORM: ORAL FORMULATION (NOT OTHERWISE SPECIFIED)
     Route: 048
  16. FOLIAMIN [Concomitant]
     Dosage: DOSE FORM: ORAL FORMULATION (NOT OTHERWISE SPECIFIED)
     Route: 048
  17. MOBIC [Concomitant]
     Route: 048
  18. ONEALFA [Concomitant]
     Dosage: DOSE FORM: ORAL FORMULATION (NOT OTHERWISE SPECIFIED)
     Route: 048
  19. EVISTA [Concomitant]
     Route: 048
  20. ZYLORIC [Concomitant]
     Route: 048
  21. MUCOSOLVAN [Concomitant]
     Route: 048

REACTIONS (4)
  - CELLULITIS [None]
  - HYPERKERATOSIS [None]
  - LOCALISED INFECTION [None]
  - LYMPHOCYTE COUNT DECREASED [None]
